FAERS Safety Report 8249385-9 (Version None)
Quarter: 2012Q1

REPORT INFORMATION
  Report Type: 
  Country: None (occurrence: None)
  Receive Date: 20120320
  Receipt Date: 20120308
  Transmission Date: 20120608
  Serious: Yes (Hospitalization)
  Sender: FDA-Public Use
  Company Number: 2012031556

PATIENT
  Age: 45 Year
  Sex: Female
  Weight: 104.3273 kg

DRUGS (18)
  1. VITAMIN D [Concomitant]
  2. CODEINE SULFATE [Concomitant]
  3. XOPENEX [Concomitant]
  4. PROTONIX [Concomitant]
  5. SYMBICORT [Concomitant]
  6. XANAX [Concomitant]
  7. HIZENTRA [Suspect]
     Indication: ALPHA-1 ANTI-TRYPSIN DEFICIENCY
     Dosage: (60 MG/KG IX/WEEK, 953 MG VIAL INTRAVENOUS (NOT OTHERWISE SPECIFIED))
     Route: 042
     Dates: start: 20120301, end: 20120301
  8. HIZENTRA [Suspect]
     Indication: ALPHA-1 ANTI-TRYPSIN DEFICIENCY
     Dosage: (60 MG/KG IX/WEEK, 953 MG VIAL INTRAVENOUS (NOT OTHERWISE SPECIFIED))
     Route: 042
     Dates: start: 20090101
  9. OXYGEN (OXYGEN) [Concomitant]
  10. BIOTIN (BIOTIN) [Concomitant]
  11. DIGESTIVE PROBIOTIC (LACTOBACILLUS DOPHILUS) [Concomitant]
  12. ALPRAZOLAM [Concomitant]
  13. IPRATROPIUM BROMIDE [Concomitant]
  14. SINGULAIR [Concomitant]
  15. LEVOTHYROXINE SODIUM [Concomitant]
  16. LEXAPRO [Concomitant]
  17. COMBIVENT [Concomitant]
  18. ALBUTEROL [Concomitant]

REACTIONS (7)
  - VOMITING [None]
  - DYSPNOEA [None]
  - ANXIETY [None]
  - NAUSEA [None]
  - PULMONARY ARTERIAL HYPERTENSION [None]
  - TOOTH LOSS [None]
  - WEIGHT DECREASED [None]
